FAERS Safety Report 9258367 (Version 2)
Quarter: 2013Q2

REPORT INFORMATION
  Report Type: Report from Study
  Country: IN (occurrence: IN)
  Receive Date: 20130426
  Receipt Date: 20130515
  Transmission Date: 20140414
  Serious: Yes (Other)
  Sender: FDA-Public Use
  Company Number: IN-ROCHE-1216040

PATIENT
  Age: 60 Year
  Sex: Male

DRUGS (3)
  1. LUCENTIS [Suspect]
     Indication: AGE-RELATED MACULAR DEGENERATION
     Dosage: 0.5 MG/DL
     Route: 050
     Dates: start: 2011
  2. LUCENTIS [Suspect]
     Dosage: 0.5 MG/DL
     Route: 050
     Dates: start: 2012
  3. LUCENTIS [Suspect]
     Dosage: 0.5 MG/DL
     Route: 050
     Dates: start: 201302

REACTIONS (2)
  - Age-related macular degeneration [Unknown]
  - Drug ineffective [Unknown]
